FAERS Safety Report 4379829-4 (Version None)
Quarter: 2004Q2

REPORT INFORMATION
  Report Type: 
  Country: None (occurrence: None)
  Receive Date: 20040614
  Receipt Date: 20040601
  Transmission Date: 20050107
  Serious: Yes (Other)
  Sender: FDA-Public Use
  Company Number: 2004032722

PATIENT
  Sex: Male
  Weight: 106.5953 kg

DRUGS (10)
  1. VIAGRA [Suspect]
     Indication: ERECTILE DYSFUNCTION
     Dosage: (50 MG), ORAL
     Route: 048
  2. ALLOPURINOL [Concomitant]
  3. ACETYLSALICYLIC ACID SRT [Concomitant]
  4. VITAMINS (VITAMINS) [Concomitant]
  5. DOXAZOSIN MESYLATE [Concomitant]
  6. METFORMIN HCL [Concomitant]
  7. GLYBURIDE [Concomitant]
  8. LISINOPRIL [Concomitant]
  9. ATORVASTATIN (ATORVASTATIN) [Concomitant]
  10. LEVOTHYROXINE SODIUM [Concomitant]

REACTIONS (3)
  - BLOOD TESTOSTERONE DECREASED [None]
  - DRUG INEFFECTIVE [None]
  - PROSTATE CANCER [None]
